FAERS Safety Report 7364945-5 (Version None)
Quarter: 2011Q1

REPORT INFORMATION
  Report Type: 
  Country: None (occurrence: None)
  Receive Date: 20110321
  Receipt Date: 20110222
  Transmission Date: 20110831
  Serious: No
  Sender: FDA-Public Use
  Company Number: US-B.I. PHARMACEUTICALS,INC./RIDGEFIELD-2011-BP-06518BP

PATIENT
  Age: 64 Year
  Sex: Female

DRUGS (5)
  1. SIMVASTATIN [Concomitant]
     Indication: CARDIAC DISORDER
  2. PRADAXA [Suspect]
     Indication: ATRIAL FIBRILLATION
     Dosage: 300 MG
     Route: 048
     Dates: start: 20101001, end: 20110101
  3. DIGOXIN [Concomitant]
     Indication: CARDIAC DISORDER
  4. COUMADIN [Concomitant]
     Indication: ATRIAL FIBRILLATION
  5. NADOLOL [Concomitant]
     Indication: CARDIAC DISORDER

REACTIONS (3)
  - URINARY INCONTINENCE [None]
  - DIZZINESS [None]
  - BACK PAIN [None]
